FAERS Safety Report 9870793 (Version 4)
Quarter: 2014Q4

REPORT INFORMATION
  Report Type: Spontaneous
  Country: US (occurrence: US)
  Receive Date: 20140205
  Receipt Date: 20141106
  Transmission Date: 20150529
  Serious: Yes (Hospitalization)
  Sender: FDA-Public Use
  Company Number: US-BAYER-2014-018332

PATIENT
  Age: 21 Year
  Sex: Female
  Weight: 65.76 kg

DRUGS (2)
  1. ALBUTEROL. [Concomitant]
     Active Substance: ALBUTEROL
     Dosage: UNK
     Dates: start: 20130708
  2. MIRENA [Suspect]
     Active Substance: LEVONORGESTREL
     Indication: CONTRACEPTION
     Dosage: 20 MCG/24HR, CONT
     Route: 015
     Dates: start: 20120727, end: 20130709

REACTIONS (9)
  - Pelvic pain [None]
  - Injury [None]
  - Menorrhagia [Not Recovered/Not Resolved]
  - Device issue [None]
  - Dyspareunia [None]
  - Device difficult to use [None]
  - Uterine perforation [None]
  - Emotional distress [None]
  - Off label use [None]

NARRATIVE: CASE EVENT DATE: 2012
